FAERS Safety Report 9649348 (Version 2)
Quarter: 2013Q4

REPORT INFORMATION
  Report Type: Spontaneous
  Country: IT (occurrence: IT)
  Receive Date: 20131028
  Receipt Date: 20131211
  Transmission Date: 20140711
  Serious: Yes (Hospitalization)
  Sender: FDA-Public Use
  Company Number: IT-TEVA-439181ISR

PATIENT
  Age: 79 Year
  Sex: Female

DRUGS (10)
  1. PANTOPRAZOLO SODICO SESQUIDRATO [Suspect]
     Indication: PROPHYLAXIS AGAINST GASTROINTESTINAL ULCER
     Dosage: 20 MILLIGRAM DAILY;
     Route: 048
     Dates: start: 20130901, end: 20131002
  2. ALLOPURINOLO MOLTENI 300MG [Suspect]
     Indication: HYPERURICAEMIA
     Dosage: 300 MILLIGRAM DAILY;
     Route: 048
     Dates: start: 20130901, end: 20131001
  3. ENAPREN 5MG [Suspect]
     Indication: HYPERTENSION
     Dosage: 5 MILLIGRAM DAILY;
     Route: 048
     Dates: start: 20130901, end: 20131002
  4. EUTIROX 100MCG [Concomitant]
  5. EUTIROX 125MCG [Concomitant]
  6. LANOXIN 0.125MG [Concomitant]
  7. CONGESCOR [Concomitant]
  8. LASIX 25MG [Concomitant]
  9. SINTROM [Concomitant]
  10. KANRENOL 100MG [Concomitant]

REACTIONS (2)
  - Mucosal inflammation [Recovered/Resolved]
  - Toxic skin eruption [Recovered/Resolved]
